FAERS Safety Report 8222574-5 (Version None)
Quarter: 2012Q1

REPORT INFORMATION
  Report Type: 
  Country: None (occurrence: None)
  Receive Date: 20120320
  Receipt Date: 20120313
  Transmission Date: 20120608
  Serious: Yes (Disabling)
  Sender: FDA-Public Use
  Company Number: DE-UCBSA-052074

PATIENT
  Age: 80 Year
  Sex: Male
  Weight: 70 kg

DRUGS (4)
  1. MARCUMAR [Concomitant]
     Route: 048
     Dates: start: 20120101
  2. ENOXAPARIN SODIUM [Concomitant]
     Dates: start: 20120101, end: 20120209
  3. KEPPRA [Suspect]
     Indication: EPILEPSY
     Route: 048
     Dates: start: 20120128, end: 20120209
  4. MARCUMAR [Concomitant]
     Indication: ATRIAL FIBRILLATION
     Dosage: SINGLE DOSE: 3 MG ; NO. OF SINGLE DOSES:1-1?  ; DAILY DOSE:3-4 MG
     Route: 048
     Dates: start: 20000101, end: 20120111

REACTIONS (4)
  - FATIGUE [None]
  - APATHY [None]
  - DEPRESSION [None]
  - DIZZINESS [None]
